FAERS Safety Report 10483355 (Version 1)
Quarter: 2014Q3

REPORT INFORMATION
  Report Type: Spontaneous
  Country: US (occurrence: None)
  Receive Date: 20140908
  Receipt Date: 20140908
  Transmission Date: 20150326
  Serious: Yes (Hospitalization)
  Sender: FDA-Public Use
  Company Number: 394905

PATIENT
  Age: 47 Year
  Sex: Female
  Weight: 135.6 kg

DRUGS (4)
  1. METFORMIN [Concomitant]
     Active Substance: METFORMIN HYDROCHLORIDE
  2. LIPITOR [Concomitant]
     Active Substance: ATORVASTATIN CALCIUM
  3. VICTOZA [Suspect]
     Active Substance: LIRAGLUTIDE
     Indication: TYPE 2 DIABETES MELLITUS
     Route: 058
     Dates: start: 201301
  4. TRAMADOL (TRAMADOL) [Concomitant]
     Active Substance: TRAMADOL

REACTIONS (1)
  - Impaired gastric emptying [None]

NARRATIVE: CASE EVENT DATE: 201309
